FAERS Safety Report 20000823 (Version 4)
Quarter: 2024Q3

REPORT INFORMATION
  Report Type: Report from Study
  Country: US (occurrence: US)
  Receive Date: 20211027
  Receipt Date: 20240729
  Transmission Date: 20241017
  Serious: Yes (Hospitalization, Other)
  Sender: ELI LILLY AND CO
  Company Number: US-ELI_LILLY_AND_COMPANY-US202110008803

PATIENT
  Age: 68 Year
  Sex: Female

DRUGS (2)
  1. TRULICITY [Suspect]
     Active Substance: DULAGLUTIDE
     Indication: Product used for unknown indication
     Dosage: 1.5 MG, WEEKLY (1/W)
     Route: 065
  2. TRULICITY [Suspect]
     Active Substance: DULAGLUTIDE
     Dosage: 1.5 MG, WEEKLY (1/W)
     Route: 065

REACTIONS (5)
  - Cerebrovascular accident [Unknown]
  - Blood glucose decreased [Unknown]
  - Cerebrovascular accident [Unknown]
  - Mental disorder [Unknown]
  - Extra dose administered [Unknown]

NARRATIVE: CASE EVENT DATE: 20210601
